FAERS Safety Report 8899958 (Version 1)
Quarter: 2012Q4

REPORT INFORMATION
  Report Type: 
  Country: US (occurrence: US)
  Receive Date: 20121109
  Receipt Date: 20121109
  Transmission Date: 20130627
  Serious: Yes (Death)
  Sender: FDA-Public Use
  Company Number: US-BRISTOL-MYERS SQUIBB COMPANY-17091018

PATIENT
  Age: 56 Year
  Sex: Male
  Weight: 131 kg

DRUGS (1)
  1. AVAPRO [Suspect]
     Dosage: Last refill: 25Oct12
     Dates: start: 20120609

REACTIONS (1)
  - Death [Fatal]
